FAERS Safety Report 17159831 (Version 1)
Quarter: 2019Q4

REPORT INFORMATION
  Report Type: Spontaneous
  Country: GB (occurrence: GB)
  Receive Date: 20191216
  Receipt Date: 20191216
  Transmission Date: 20200122
  Serious: Yes (Other)
  Sender: FDA-Public Use
  Company Number: GB-SA-2019SA342905

PATIENT
  Sex: Male

DRUGS (1)
  1. DOCETAXEL. [Suspect]
     Active Substance: DOCETAXEL
     Indication: PROSTATE CANCER
     Dosage: UNK
     Route: 042
     Dates: start: 201408

REACTIONS (5)
  - Pulmonary mass [Unknown]
  - Metastases to lung [Unknown]
  - Pleural thickening [Unknown]
  - Disease progression [Unknown]
  - Metastases to bone [Unknown]
